FAERS Safety Report 5119867-7 (Version None)
Quarter: 2006Q4

REPORT INFORMATION
  Report Type: 
  Country: None (occurrence: None)
  Receive Date: 20061003
  Receipt Date: 20060803
  Transmission Date: 20070319
  Serious: Yes (Hospitalization, Other)
  Sender: FDA-Public Use
  Company Number: JP-BOEHRINGER INGELHEIM PHARMACEUTICALS, INC.-2006-BP-09314NB

PATIENT
  Sex: Female
  Weight: 45 kg

DRUGS (5)
  1. BI-SIFROL TABLETS [Suspect]
     Indication: PARKINSON'S DISEASE
     Route: 048
     Dates: start: 20050218, end: 20060217
  2. GASMOTIN [Concomitant]
     Indication: GASTRITIS
     Route: 048
     Dates: start: 20040408
  3. NEUER [Concomitant]
     Indication: GASTRITIS
     Route: 048
     Dates: start: 20050408, end: 20060217
  4. TANATRIL [Concomitant]
     Indication: HYPERTENSION
     Route: 048
     Dates: start: 20050512, end: 20060217
  5. MUCOSOLVAN L [Concomitant]
     Indication: BRONCHITIS CHRONIC
     Route: 048
     Dates: start: 20050620

REACTIONS (9)
  - BLOOD PRESSURE INCREASED [None]
  - CONSTIPATION [None]
  - DELIRIUM [None]
  - DELUSION [None]
  - HALLUCINATION [None]
  - HYPONATRAEMIA [None]
  - PNEUMONIA ASPIRATION [None]
  - SOMNOLENCE [None]
  - WHITE BLOOD CELL COUNT INCREASED [None]
